FAERS Safety Report 7590334-4 (Version None)
Quarter: 2011Q3

REPORT INFORMATION
  Report Type: 
  Country: None (occurrence: None)
  Receive Date: 20110705
  Receipt Date: 20110630
  Transmission Date: 20111222
  Serious: Yes (Life-Threatening, Other)
  Sender: FDA-Public Use
  Company Number: CN-BAYER-2011-056898

PATIENT
  Age: 65 Year
  Sex: Female

DRUGS (1)
  1. ULTRAVIST 370 [Suspect]
     Indication: ARTERIOGRAM CORONARY
     Dosage: UNK
     Dates: start: 20110630, end: 20110630

REACTIONS (6)
  - DIZZINESS [None]
  - COMA [None]
  - CHEST DISCOMFORT [None]
  - CARDIAC ARREST [None]
  - BLOOD PRESSURE IMMEASURABLE [None]
  - MALAISE [None]
